FAERS Safety Report 4704522-5 (Version None)
Quarter: 2005Q2

REPORT INFORMATION
  Report Type: 
  Country: None (occurrence: None)
  Receive Date: 20050629
  Receipt Date: 20050616
  Transmission Date: 20051028
  Serious: Yes (Hospitalization)
  Sender: FDA-Public Use
  Company Number: 2005037540

PATIENT
  Age: 50 Year
  Sex: Male
  Weight: 80 kg

DRUGS (3)
  1. LINEZOLID                 SOLUTION, STERILE (LINEZOLID) [Suspect]
     Indication: CATHETER RELATED INFECTION
     Dosage: 1200 MG (600 MG, 2 IN 1 D), INTRAVENOUS
     Route: 042
     Dates: start: 20050204, end: 20050214
  2. ASPIRIN [Concomitant]
  3. SIMVASTATIN [Concomitant]

REACTIONS (8)
  - BLOOD POTASSIUM DECREASED [None]
  - BLOOD SODIUM DECREASED [None]
  - CONDITION AGGRAVATED [None]
  - PLATELET COUNT DECREASED [None]
  - RED BLOOD CELL COUNT DECREASED [None]
  - RENAL FAILURE [None]
  - RETROPERITONEAL HAEMORRHAGE [None]
  - SHOCK [None]
